FAERS Safety Report 9370564 (Version 1)
Quarter: 2013Q2

REPORT INFORMATION
  Report Type: Spontaneous
  Country: US (occurrence: US)
  Receive Date: 20130626
  Receipt Date: 20130626
  Transmission Date: 20140414
  Serious: Yes (Other)
  Sender: FDA-Public Use
  Company Number: US-PFIZER INC-2013188512

PATIENT
  Age: 14 Month
  Sex: 0

DRUGS (2)
  1. LEVOTHYROXINE SODIUM [Suspect]
     Indication: CONGENITAL HYPOTHYROIDISM
     Dosage: UNK
  2. CYTOMEL [Suspect]
     Indication: CONGENITAL HYPOTHYROIDISM
     Dosage: UNK

REACTIONS (3)
  - Drug name confusion [Unknown]
  - Drug dispensing error [Unknown]
  - Tri-iodothyronine increased [Unknown]
